FAERS Safety Report 5908089-5 (Version None)
Quarter: 2008Q4

REPORT INFORMATION
  Report Type: 
  Country: None (occurrence: None)
  Receive Date: 20081003
  Receipt Date: 20080923
  Transmission Date: 20090506
  Serious: Yes (Disabling, Other)
  Sender: FDA-Public Use
  Company Number: NO-PFIZER INC-2008080818

PATIENT
  Sex: Female

DRUGS (3)
  1. PHENYTOIN TABLETS [Suspect]
     Indication: EPILEPSY
     Route: 064
  2. LAMICTAL [Suspect]
     Indication: EPILEPSY
     Route: 064
     Dates: start: 19960501
  3. LEUCOVORIN CALCIUM [Concomitant]
     Route: 064

REACTIONS (2)
  - DEAFNESS CONGENITAL [None]
  - DRUG EXPOSURE DURING PREGNANCY [None]
